FAERS Safety Report 7720268-3 (Version None)
Quarter: 2011Q3

REPORT INFORMATION
  Report Type: 
  Country: None (occurrence: None)
  Receive Date: 20110831
  Receipt Date: 20110822
  Transmission Date: 20111222
  Serious: Yes (Other)
  Sender: FDA-Public Use
  Company Number: DE-PFIZER INC-2011177047

PATIENT
  Age: 85 Year
  Sex: Male

DRUGS (3)
  1. ATORVASTATIN CALCIUM [Suspect]
     Dosage: 10 MG, 1X/DAY
  2. MULTAQ [Suspect]
     Dosage: UNK
     Dates: start: 20110101
  3. RAMIPRIL [Suspect]
     Dosage: UNK
     Dates: start: 20110101

REACTIONS (2)
  - MEMORY IMPAIRMENT [None]
  - DISORIENTATION [None]
